FAERS Safety Report 5898151-8 (Version None)
Quarter: 2008Q3

REPORT INFORMATION
  Report Type: 
  Country: None (occurrence: None)
  Receive Date: 20080908
  Receipt Date: 20070815
  Transmission Date: 20090109
  Serious: Yes (Other)
  Sender: FDA-Public Use
  Company Number: PHEH2007US03109

PATIENT
  Age: 64 Year
  Sex: Female
  Weight: 121.5 kg

DRUGS (4)
  1. DIOVAN [Suspect]
     Indication: HYPERTENSION
     Dosage: 320 MG, QD, ORAL
     Route: 048
     Dates: start: 20070223
  2. WARFARIN SODIUM [Concomitant]
  3. LASIX [Concomitant]
  4. ZOCOR [Concomitant]

REACTIONS (7)
  - DYSPNOEA [None]
  - ERYTHEMA [None]
  - FATIGUE [None]
  - GAIT DISTURBANCE [None]
  - HYPOTENSION [None]
  - MUSCULAR WEAKNESS [None]
  - PAIN IN EXTREMITY [None]
